FAERS Safety Report 6414085-4 (Version None)
Quarter: 2009Q4

REPORT INFORMATION
  Report Type: 
  Country: None (occurrence: None)
  Receive Date: 20091026
  Receipt Date: 20091016
  Transmission Date: 20100525
  Serious: Yes (Death, Other)
  Sender: FDA-Public Use
  Company Number: ID-RB-020660-09

PATIENT
  Age: 30 Year
  Sex: Male

DRUGS (7)
  1. SUBUTEX [Suspect]
     Route: 060
     Dates: start: 20051215
  2. SUBUTEX [Suspect]
     Dosage: DOSING DETAILS UNKNOWN
     Route: 065
     Dates: start: 20090906
  3. SUBUTEX [Suspect]
     Dosage: DOSING DETAILS UNKNOWN
     Route: 065
     Dates: end: 20090101
  4. SUBUTEX [Suspect]
     Dosage: SUBLINGUAL TABLET THROUGH INJECTION
     Route: 065
     Dates: start: 20071023
  5. DUVIRAL [Concomitant]
     Indication: ANTIRETROVIRAL THERAPY
     Dosage: DOSING INFORMATION UNKNOWN
     Route: 065
     Dates: start: 20080801, end: 20090904
  6. EFAVIRENZ [Concomitant]
     Indication: ANTIRETROVIRAL THERAPY
     Dosage: DOSING INFORMATION UNKNOWN
     Route: 065
     Dates: start: 20080801, end: 20090917
  7. NEVIRAL [Concomitant]
     Indication: ANTIRETROVIRAL THERAPY
     Route: 065
     Dates: start: 20080101, end: 20090917

REACTIONS (8)
  - AFFECTIVE DISORDER [None]
  - ALTERED STATE OF CONSCIOUSNESS [None]
  - DELIRIUM [None]
  - HYPOVOLAEMIA [None]
  - INCORRECT ROUTE OF DRUG ADMINISTRATION [None]
  - SEPSIS [None]
  - SUBSTANCE ABUSE [None]
  - TOXIC EPIDERMAL NECROLYSIS [None]
